FAERS Safety Report 4408510-8 (Version None)
Quarter: 2004Q3

REPORT INFORMATION
  Report Type: 
  Country: None (occurrence: None)
  Receive Date: 20040722
  Receipt Date: 20040715
  Transmission Date: 20050211
  Serious: Yes (Life-Threatening, Hospitalization)
  Sender: FDA-Public Use
  Company Number: 200111517BVD

PATIENT
  Age: 66 Year
  Sex: Male
  Weight: 70 kg

DRUGS (6)
  1. CIPROFLOXACIN [Suspect]
     Indication: URINARY TRACT INFECTION
     Dosage: ORAL
     Route: 048
     Dates: start: 20010713, end: 20010720
  2. CEFTRIAXON (CEFTRIAXONE) [Suspect]
     Dosage: INTRAVENOUS
     Route: 042
     Dates: start: 20010711, end: 20010712
  3. CLINDAMYCIN [Suspect]
     Dosage: INTRAVENOUS
     Route: 042
     Dates: start: 20010728, end: 20010729
  4. CARBAMAZEPINE [Suspect]
  5. DESFLURANE/SUPRANE [Concomitant]
  6. 10 UNITS OF STORED BLOOD [Concomitant]

REACTIONS (11)
  - BRADYCARDIA [None]
  - BRAIN OEDEMA [None]
  - CHOLESTASIS [None]
  - COOMBS TEST POSITIVE [None]
  - DERMATITIS ALLERGIC [None]
  - HAEMOLYTIC ANAEMIA [None]
  - HEPATIC ENCEPHALOPATHY [None]
  - HEPATIC FAILURE [None]
  - HYPERTENSION [None]
  - PYREXIA [None]
  - THROMBOCYTOPENIA [None]
